FAERS Safety Report 14158908 (Version 1)
Quarter: 2017Q4

REPORT INFORMATION
  Report Type: Spontaneous
  Country: DE (occurrence: DE)
  Receive Date: 20171103
  Receipt Date: 20171103
  Transmission Date: 20180321
  Serious: Yes (Hospitalization, Other)
  Sender: FDA-Public Use
  Company Number: DE-TEVA-820122GER

PATIENT
  Sex: Male

DRUGS (2)
  1. ALLOPURINOL. [Suspect]
     Active Substance: ALLOPURINOL
     Route: 065
  2. TRILEPTAL [Interacting]
     Active Substance: OXCARBAZEPINE
     Indication: TRIGEMINAL NEURALGIA
     Route: 065

REACTIONS (2)
  - Trigeminal neuralgia [Unknown]
  - Drug interaction [Unknown]
